FAERS Safety Report 7633043-5 (Version None)
Quarter: 2011Q3

REPORT INFORMATION
  Report Type: 
  Country: None (occurrence: None)
  Receive Date: 20110725
  Receipt Date: 20110718
  Transmission Date: 20111222
  Serious: Yes (Life-Threatening, Hospitalization)
  Sender: FDA-Public Use
  Company Number: PHHO2010DE16120

PATIENT
  Sex: Male
  Weight: 94 kg

DRUGS (10)
  1. FALITHROM [Concomitant]
  2. NEBIVOLOL [Concomitant]
  3. DIGITOXIN TAB [Concomitant]
     Indication: CARDIAC FAILURE
  4. TORSEMIDE [Concomitant]
     Indication: CARDIAC FAILURE
  5. ENALAPRIL MALEATE [Suspect]
     Indication: CARDIAC FAILURE
     Dosage: UNK
     Route: 048
     Dates: start: 20100115, end: 20100408
  6. ALISKIREN [Suspect]
     Indication: CARDIAC FAILURE
     Dosage: UNK
     Dates: start: 20100310, end: 20100408
  7. FLUVASTATIN SODIUM [Concomitant]
     Indication: HYPERCHOLESTEROLAEMIA
  8. BLINDED ALISKIREN [Suspect]
     Dosage: CODE NOT BROKEN
     Route: 048
     Dates: start: 20100408, end: 20101013
  9. ENALAPRIL MALEATE [Suspect]
     Dosage: CODE NOT BROKEN
     Route: 048
     Dates: start: 20100408, end: 20101013
  10. BLINDED NO TREATMENT RECEIVED [Suspect]
     Dosage: CODE NOT BROKEN
     Route: 048
     Dates: start: 20100408, end: 20101013

REACTIONS (4)
  - CARDIAC FAILURE [None]
  - DYSPNOEA AT REST [None]
  - DRUG INEFFECTIVE [None]
  - PULMONARY OEDEMA [None]
